FAERS Safety Report 8383263-X (Version None)
Quarter: 2012Q2

REPORT INFORMATION
  Report Type: 
  Country: None (occurrence: None)
  Receive Date: 20120524
  Receipt Date: 20120424
  Transmission Date: 20120825
  Serious: No
  Sender: FDA-Public Use
  Company Number: US-BAYER-2012-041425

PATIENT
  Sex: Female

DRUGS (21)
  1. TESSALON [Concomitant]
     Dosage: 200 MG THREE TIMES DAILY AS NEEDED
     Route: 048
  2. CYMBALTA [Concomitant]
     Dosage: 30 MG, QD
     Route: 048
  3. LANOXIN [Concomitant]
     Dosage: 0.125 MG, QD
     Route: 048
  4. AVELOX [Suspect]
  5. VITAMIN D [Concomitant]
     Dosage: 5000 IU, QD
     Route: 048
  6. DIFLUCAN [Concomitant]
     Dosage: 150 MG, QD
     Route: 048
  7. JANUVIA [Concomitant]
     Dosage: 100 MG, QD
     Route: 048
  8. K-TAB [Concomitant]
     Dosage: 20 MEQ, QD
     Route: 048
  9. LANTUS [Concomitant]
     Dosage: 53 IU, UNK (100 UNIT/ML)
  10. ABILIFY [Concomitant]
     Dosage: 15 MG, QD
     Route: 048
  11. FLEXERIL [Concomitant]
     Indication: MUSCLE SPASMS
     Dosage: 10 MG, TID
     Route: 048
  12. ACCUPRIL [Concomitant]
     Dosage: 40 MG, QD
     Route: 048
  13. SYMBICORT [Concomitant]
     Dosage: 2 PUFF(S), BID
     Route: 055
  14. BUSPAR [Concomitant]
     Dosage: 20 MG, TID
     Route: 048
  15. ELAVIL [Concomitant]
     Dosage: 25 MG, QD
     Route: 048
  16. ASPIRIN [Concomitant]
     Dosage: 81 MG, QD
     Route: 048
  17. COREG [Concomitant]
     Dosage: 25 MG, BID
     Route: 048
  18. LANTUS [Concomitant]
     Dosage: 50 IU, UNK (100 UNIT/ML)
  19. WELCHOL [Concomitant]
     Dosage: 625 MG, BID
     Route: 048
  20. LASIX [Concomitant]
     Dosage: 20 MG, QD
     Route: 048
  21. NEURONTIN [Concomitant]
     Dosage: 600 MG, UNK
     Route: 048

REACTIONS (1)
  - HYPERSENSITIVITY [None]
